FAERS Safety Report 7413874-7 (Version None)
Quarter: 2011Q2

REPORT INFORMATION
  Report Type: 
  Country: None (occurrence: None)
  Receive Date: 20110414
  Receipt Date: 20110405
  Transmission Date: 20111010
  Serious: Yes (Other)
  Sender: FDA-Public Use
  Company Number: NL-AMGEN-NLDSP2011013451

PATIENT
  Age: 67 Year
  Sex: Female

DRUGS (6)
  1. ARTHROTEC                          /00372302/ [Concomitant]
     Dosage: 75 MG, AS NEEDED
     Dates: end: 20110301
  2. GABAPENTIN [Concomitant]
     Dosage: 300 MG, 1X/DAY
  3. METOPROLOL SUCCINATE [Concomitant]
     Dosage: 200 MG, 1X/DAY
  4. OMEPRAZOLE [Concomitant]
     Dosage: 40 MG, 1X/DAY
  5. ENBREL [Suspect]
     Indication: PSORIATIC ARTHROPATHY
     Dosage: 50 MG, WEEKLY
     Dates: start: 20110104
  6. URSO FALK [Concomitant]
     Dosage: 250 MG, 1X/DAY

REACTIONS (2)
  - HEADACHE [None]
  - BLOOD PRESSURE INCREASED [None]
